FAERS Safety Report 12996436 (Version 4)
Quarter: 2017Q2

REPORT INFORMATION
  Report Type: Report from Study
  Country: US (occurrence: US)
  Receive Date: 20161204
  Receipt Date: 20170605
  Transmission Date: 20170830
  Serious: Yes (Hospitalization, Other)
  Sender: FDA-Public Use
  Company Number: PHEH2016US031400

PATIENT
  Age: 51 Year
  Sex: Female
  Weight: 97.97 kg

DRUGS (1)
  1. COSENTYX [Suspect]
     Active Substance: SECUKINUMAB
     Indication: PRODUCT USED FOR UNKNOWN INDICATION
     Dosage: UNK
     Route: 065

REACTIONS (5)
  - Rash vesicular [Unknown]
  - Stress [Unknown]
  - Rash [Unknown]
  - Psoriasis [Unknown]
  - Coronary artery occlusion [Unknown]

NARRATIVE: CASE EVENT DATE: 20170414
